FAERS Safety Report 7269348-X (Version None)
Quarter: 2011Q1

REPORT INFORMATION
  Report Type: 
  Country: None (occurrence: None)
  Receive Date: 20110202
  Receipt Date: 20110125
  Transmission Date: 20110831
  Serious: Yes (Other)
  Sender: FDA-Public Use
  Company Number: US-JNJFOC-20100704629

PATIENT
  Sex: Female

DRUGS (15)
  1. LEVOFLOXACIN [Suspect]
     Indication: ILL-DEFINED DISORDER
     Route: 042
  2. LEVOFLOXACIN [Suspect]
     Route: 042
  3. LEVAQUIN [Suspect]
     Indication: SINUS DISORDER
     Route: 048
  4. HYDROCHLOROTHIAZIDE [Concomitant]
     Indication: HYPERTENSION
  5. COMBIVENT [Concomitant]
     Indication: ASTHMA
  6. PREDNISONE [Suspect]
     Indication: ASTHMA
     Route: 065
  7. LEVAQUIN [Suspect]
     Indication: BRONCHITIS
     Route: 048
  8. ACTOS [Concomitant]
     Indication: DIABETES MELLITUS
  9. KLONOPIN [Concomitant]
     Indication: BIPOLAR DISORDER
  10. SINGULAIR [Concomitant]
     Indication: ASTHMA
  11. LEVAQUIN [Suspect]
     Indication: LUNG INFECTION
     Route: 048
  12. LEVAQUIN [Suspect]
     Indication: ASTHMA
     Route: 048
  13. LEVEMIR [Concomitant]
     Indication: DIABETES MELLITUS
  14. METFORMIN [Concomitant]
     Indication: DIABETES MELLITUS
  15. DIOVAN HCT [Concomitant]
     Indication: HYPERTENSION

REACTIONS (6)
  - ROTATOR CUFF SYNDROME [None]
  - CUBITAL TUNNEL SYNDROME [None]
  - EPICONDYLITIS [None]
  - TENDONITIS [None]
  - BURSITIS [None]
  - PARAESTHESIA [None]
